FAERS Safety Report 13609232 (Version 1)
Quarter: 2017Q2

REPORT INFORMATION
  Report Type: Spontaneous
  Country: BE (occurrence: BE)
  Receive Date: 20170602
  Receipt Date: 20170602
  Transmission Date: 20170830
  Serious: Yes (Hospitalization)
  Sender: FDA-Public Use
  Company Number: BE-SEPTODONT-201704044

PATIENT
  Age: 4 Year
  Sex: Male
  Weight: 20 kg

DRUGS (2)
  1. XYLONOR SPRAY [Concomitant]
     Indication: LOCAL ANAESTHESIA
     Dosage: ADMINISTRATED WITH A COTTON ROLL
     Route: 061
     Dates: start: 20170517
  2. LIGNOSPAN 20 MG/ML + 0,0125 MG/ML [Suspect]
     Active Substance: EPINEPHRINE BITARTRATE\LIDOCAINE HYDROCHLORIDE
     Indication: LOCAL ANAESTHESIA
     Dosage: 1 CARTRIDGE BY INFILTRATION INJECTION ON HEALTHY SITE
     Route: 004
     Dates: start: 20170517

REACTIONS (2)
  - Sudden onset of sleep [Recovered/Resolved]
  - Somnolence [Recovered/Resolved]

NARRATIVE: CASE EVENT DATE: 20170517
